FAERS Safety Report 9888103 (Version 1)
Quarter: 2014Q1

REPORT INFORMATION
  Report Type: Spontaneous
  Country: AU (occurrence: None)
  Receive Date: 20140207
  Receipt Date: 20140207
  Transmission Date: 20141002
  Serious: Yes (Hospitalization)
  Sender: FDA-Public Use
  Company Number: IPC201401-000062

PATIENT
  Age: 80 Year
  Sex: Male

DRUGS (8)
  1. FUROSEMIDE (FUROSEMIDE) (FUROSEMIDE) [Suspect]
  2. HYDROCHLOROTHIAZIDE [Suspect]
  3. RIVAROXABAN [Suspect]
     Indication: ANTICOAGULANT THERAPY
  4. ALLOPURINOL (ALLOPURINOL) (ALLOPURINOL) [Concomitant]
  5. ENALAPRIL (ENALAPRIL) (ENALAPRIL) [Concomitant]
  6. BISOPROLOL (BISOPROLOL) (BISOPROLOL) [Concomitant]
  7. SIMVASTATIN (SIMVASTATIN) (SIMVASTATIN) [Concomitant]
  8. AMLODIPINE (AMLODIPINE) (AMLODIPINE) [Concomitant]

REACTIONS (13)
  - Dyspnoea [None]
  - Oedema peripheral [None]
  - Atrial fibrillation [None]
  - Diarrhoea [None]
  - Aphasia [None]
  - Hemiparesis [None]
  - Pyrexia [None]
  - Leukocytosis [None]
  - Pseudomonas test positive [None]
  - Cerebrovascular accident [None]
  - Dehydration [None]
  - Dehydration [None]
  - Cerebral ischaemia [None]
